FAERS Safety Report 17898729 (Version 1)
Quarter: 2020Q2

REPORT INFORMATION
  Report Type: Spontaneous
  Country: CZ (occurrence: CZ)
  Receive Date: 20200615
  Receipt Date: 20200615
  Transmission Date: 20200714
  Serious: Yes (Death, Other)
  Sender: FDA-Public Use
  Company Number: CZ-AMGEN-CZESP2020092999

PATIENT

DRUGS (1)
  1. FILGRASTIM [Suspect]
     Active Substance: FILGRASTIM
     Indication: HAEMATOPOIETIC STEM CELL MOBILISATION
     Dosage: 8 MICROGRAM/KILOGRAM, BID
     Route: 058

REACTIONS (12)
  - Bone pain [Unknown]
  - Toxicity to various agents [Unknown]
  - Death [Fatal]
  - Amyotrophic lateral sclerosis [Unknown]
  - Fatigue [Unknown]
  - Head and neck cancer [Unknown]
  - Angiopathy [Unknown]
  - Headache [Unknown]
  - Influenza like illness [Unknown]
  - Hypocalcaemia [Recovered/Resolved]
  - Application site pain [Unknown]
  - Drug ineffective [Unknown]
